FAERS Safety Report 6913341-0 (Version None)
Quarter: 2010Q3

REPORT INFORMATION
  Report Type: 
  Country: None (occurrence: None)
  Receive Date: 20100809
  Receipt Date: 20100726
  Transmission Date: 20110219
  Serious: Yes (Other)
  Sender: FDA-Public Use
  Company Number: PHHY2010JP50024

PATIENT
  Sex: Male

DRUGS (5)
  1. ICL670A ICL+DISTAB [Suspect]
     Indication: MYELODYSPLASTIC SYNDROME
     Dosage: 1000 MG DAILY
     Route: 048
     Dates: start: 20090202, end: 20091124
  2. ICL670A ICL+DISTAB [Suspect]
     Indication: IRON OVERLOAD
  3. DESFERAL [Concomitant]
     Indication: IRON OVERLOAD
     Dosage: 500MG
     Dates: start: 20040723, end: 20060623
  4. APRINOL [Concomitant]
     Dosage: 100MG
     Route: 048
     Dates: start: 20090202
  5. LANSOPRAZOLE [Concomitant]
     Dosage: 15MG
     Route: 048
     Dates: start: 20090202

REACTIONS (3)
  - ANAEMIA [None]
  - BLOOD LACTATE DEHYDROGENASE INCREASED [None]
  - WHITE BLOOD CELL COUNT DECREASED [None]
